FAERS Safety Report 8560633-8 (Version None)
Quarter: 2012Q3

REPORT INFORMATION
  Report Type: 
  Country: None (occurrence: None)
  Receive Date: 20120727
  Receipt Date: 20120727
  Transmission Date: 20120928
  Serious: Yes (Hospitalization)
  Sender: FDA-Public Use
  Company Number: None

PATIENT
  Age: 76 Year
  Sex: Female
  Weight: 50.3 kg

DRUGS (7)
  1. COUMADIN [Concomitant]
  2. ABILIFY [Concomitant]
  3. NAMENDA [Concomitant]
  4. REMERON [Concomitant]
  5. PREDNISONE [Concomitant]
  6. DIGOXIN [Suspect]
     Indication: ATRIAL FIBRILLATION
     Dosage: PO CHRONIC
     Route: 048
  7. ARICEPT [Concomitant]

REACTIONS (3)
  - DRUG LEVEL INCREASED [None]
  - DRUG INTERACTION [None]
  - GASTROINTESTINAL HAEMORRHAGE [None]
